FAERS Safety Report 9218797 (Version 1)
Quarter: 2013Q2

REPORT INFORMATION
  Report Type: Spontaneous
  Country: US (occurrence: None)
  Receive Date: 20130405
  Receipt Date: 20130405
  Transmission Date: 20140414
  Serious: Yes (Other)
  Sender: FDA-Public Use
  Company Number: None

PATIENT
  Age: 40 Year
  Sex: Female
  Weight: 90.72 kg

DRUGS (1)
  1. MINOCYCLINE [Suspect]
     Indication: ACNE
     Dosage: 1 CAPSULE 2 TIMES/DAY PO
     Route: 048
     Dates: start: 20130318, end: 20130403

REACTIONS (4)
  - Arthralgia [None]
  - Rash [None]
  - Drug hypersensitivity [None]
  - Pain [None]
